FAERS Safety Report 5019580-0 (Version None)
Quarter: 2006Q2

REPORT INFORMATION
  Report Type: 
  Country: None (occurrence: None)
  Receive Date: 20060530
  Receipt Date: 20060523
  Transmission Date: 20061013
  Serious: Yes (Life-Threatening)
  Sender: FDA-Public Use
  Company Number: 200611996GDS

PATIENT
  Age: 71 Year
  Sex: Female
  Weight: 123 kg

DRUGS (14)
  1. AVELOX [Suspect]
     Indication: PNEUMONIA
     Dosage: 400 MG, ONCE, INTRAVENOUS
     Route: 042
     Dates: start: 20060411
  2. AVELOX [Suspect]
     Indication: PNEUMONIA
     Dosage: SEE IMAGE
     Route: 048
     Dates: start: 20060412
  3. AVELOX [Suspect]
     Indication: PNEUMONIA
     Dosage: SEE IMAGE
     Route: 048
     Dates: start: 20060413
  4. COUMADIN [Concomitant]
  5. DIABETA [Concomitant]
  6. DILTIAZEM CD [Concomitant]
  7. MEDROXYPROGESTERONE [Concomitant]
  8. VASOTEC [Concomitant]
  9. CLONIDINE [Concomitant]
  10. AVANDIA [Concomitant]
  11. INSULIN HUMAN R [Concomitant]
  12. GRAVOL TAB [Concomitant]
  13. GLUCOPHAGE [Concomitant]
  14. .. [Concomitant]

REACTIONS (2)
  - HYPOGLYCAEMIA [None]
  - THERAPY NON-RESPONDER [None]
